FAERS Safety Report 5806363-4 (Version None)
Quarter: 2008Q3

REPORT INFORMATION
  Report Type: 
  Country: None (occurrence: None)
  Receive Date: 20080710
  Receipt Date: 20080707
  Transmission Date: 20090109
  Serious: Yes (Death)
  Sender: FDA-Public Use
  Company Number: JP-ASTRAZENECA-2007AP04604

PATIENT
  Age: 73 Year
  Sex: Female
  Weight: 50 kg

DRUGS (6)
  1. ARIMIDEX [Suspect]
     Indication: BREAST CANCER
     Route: 048
     Dates: start: 20070703, end: 20070729
  2. URSO 250 [Concomitant]
     Indication: HEPATIC FUNCTION ABNORMAL
     Route: 048
  3. NORVASC [Concomitant]
     Indication: HYPERTENSION
     Route: 048
  4. LIVALO [Concomitant]
     Route: 048
  5. PATANOL [Concomitant]
     Indication: CATARACT
     Dosage: DOSE UNKNOWN, AS NEEDED
     Route: 047
  6. FLUOROMETHOLONE [Concomitant]
     Indication: CATARACT
     Dosage: DOSE UNKNOWN, AS NEEDED
     Route: 047

REACTIONS (1)
  - INTERSTITIAL LUNG DISEASE [None]
